FAERS Safety Report 8490450-9 (Version None)
Quarter: 2012Q3

REPORT INFORMATION
  Report Type: 
  Country: None (occurrence: None)
  Receive Date: 20120705
  Receipt Date: 20120625
  Transmission Date: 20120928
  Serious: Yes (Hospitalization, Other)
  Sender: FDA-Public Use
  Company Number: JP-CELGENEUS-087-50794-12064002

PATIENT
  Sex: Male
  Weight: 49 kg

DRUGS (15)
  1. LIPITOR [Concomitant]
     Route: 065
  2. BASEN [Concomitant]
     Route: 065
  3. DIFLUCAN [Concomitant]
     Route: 065
     Dates: start: 20120411
  4. KYTRIL [Concomitant]
     Route: 065
     Dates: start: 20120411, end: 20120417
  5. LASIX [Concomitant]
     Route: 065
  6. LANSOPRAZOLE [Concomitant]
     Route: 065
  7. KYTRIL [Concomitant]
     Route: 065
     Dates: start: 20120202, end: 20120208
  8. ITRACONAZOLE [Concomitant]
     Route: 065
     Dates: end: 20120413
  9. MAGNESIUM OXIDE [Concomitant]
     Route: 065
  10. BISOPROLOL FUMARATE [Concomitant]
     Route: 065
  11. ALDACTONE [Concomitant]
     Route: 065
     Dates: start: 20120405
  12. LEVOFLOXACIN [Concomitant]
     Route: 065
  13. VIDAZA [Suspect]
     Indication: MYELODYSPLASTIC SYNDROME
     Dosage: 75 MILLIGRAM/SQ. METER
     Route: 041
     Dates: start: 20120202, end: 20120208
  14. VIDAZA [Suspect]
     Dosage: 37.5 MILLIGRAM/SQ. METER
     Route: 041
     Dates: start: 20120411, end: 20120417
  15. SIGMART [Concomitant]
     Route: 065

REACTIONS (3)
  - WHITE BLOOD CELL COUNT DECREASED [None]
  - LEFT VENTRICULAR DYSFUNCTION [None]
  - NEUTROPHIL COUNT DECREASED [None]
